FAERS Safety Report 8402112-4 (Version None)
Quarter: 2012Q2

REPORT INFORMATION
  Report Type: 
  Country: None (occurrence: None)
  Receive Date: 20120529
  Receipt Date: 20120514
  Transmission Date: 20120825
  Serious: Yes (Hospitalization)
  Sender: FDA-Public Use
  Company Number: 2012SP000598

PATIENT
  Age: 46 Year
  Sex: Female
  Weight: 79 kg

DRUGS (9)
  1. OLMESARTAN MEDOXOMIL [Concomitant]
  2. NORVASC [Concomitant]
  3. REBETOL [Suspect]
     Indication: HEPATITIS C
     Dosage: 600 MG;QD;PO
     Route: 048
     Dates: start: 20110815, end: 20111011
  4. LOXOPROFEN [Concomitant]
  5. URSO 250 [Concomitant]
  6. MARZULENE-S [Concomitant]
  7. ABILIFY [Concomitant]
  8. INTERFERON [Suspect]
     Indication: HEPATITIS C
     Dosage: 3 MIU;QD;IV
     Route: 042
     Dates: start: 20110815, end: 20111010
  9. ROHYPNOL [Concomitant]

REACTIONS (3)
  - BACTERAEMIA [None]
  - PNEUMONIA [None]
  - CELLULITIS [None]
